FAERS Safety Report 14685394 (Version 1)
Quarter: 2018Q1

REPORT INFORMATION
  Report Type: Spontaneous
  Country: US (occurrence: US)
  Receive Date: 20180327
  Receipt Date: 20180327
  Transmission Date: 20180509
  Serious: No
  Sender: FDA-Public Use
  Company Number: None

PATIENT
  Age: 44 Year
  Sex: Male
  Weight: 105.23 kg

DRUGS (5)
  1. TRANSDERM SCOP [Suspect]
     Active Substance: SCOPOLAMINE
     Indication: VERTIGO
     Dosage: 1.5 MG 4 PATCHES 1 PATCH EVERY 3 DAYS PUT BEHIND THE EAR
     Route: 061
     Dates: start: 20180311, end: 20180313
  2. LEVOTHYROXINE. [Concomitant]
     Active Substance: LEVOTHYROXINE
  3. CLONAZEPAM. [Concomitant]
     Active Substance: CLONAZEPAM
  4. TRICOREX [Suspect]
     Active Substance: AMBROXOL\GUAIFENESIN\TERBUTALINE
  5. TRANSDERM SCOP [Suspect]
     Active Substance: SCOPOLAMINE
     Indication: NAUSEA
     Dosage: 1.5 MG 4 PATCHES 1 PATCH EVERY 3 DAYS PUT BEHIND THE EAR
     Route: 061
     Dates: start: 20180311, end: 20180313

REACTIONS (1)
  - Visual impairment [None]

NARRATIVE: CASE EVENT DATE: 20180302
